FAERS Safety Report 23605484 (Version 1)
Quarter: 2024Q1

REPORT INFORMATION
  Report Type: Spontaneous
  Country: US (occurrence: US)
  Receive Date: 20240307
  Receipt Date: 20240307
  Transmission Date: 20240410
  Serious: Yes (Life-Threatening, Other)
  Sender: FDA-Public Use
  Company Number: US-SANOFI-01968113

PATIENT
  Age: 83 Year
  Sex: Female

DRUGS (2)
  1. AVAPRO [Suspect]
     Active Substance: IRBESARTAN
     Dosage: 0.5 DF, QD
  2. AVAPRO [Suspect]
     Active Substance: IRBESARTAN
     Dosage: 0.5 DF, QD

REACTIONS (6)
  - Wrong technique in product usage process [Unknown]
  - Autoimmune disorder [Unknown]
  - Gallbladder disorder [Unknown]
  - Thyroid disorder [Unknown]
  - Arthropathy [Unknown]
  - Tachycardia [Not Recovered/Not Resolved]
